FAERS Safety Report 13704959 (Version 1)
Quarter: 2017Q2

REPORT INFORMATION
  Report Type: Spontaneous
  Country: US (occurrence: US)
  Receive Date: 20170629
  Receipt Date: 20170629
  Transmission Date: 20170830
  Serious: Yes (Disabling)
  Sender: FDA-Public Use
  Company Number: None

PATIENT
  Age: 68 Year
  Sex: Male
  Weight: 74.25 kg

DRUGS (12)
  1. VITAMIN B COMPLEX [Concomitant]
     Active Substance: CYANOCOBALAMIN\DEXPANTHENOL\NIACINAMIDE\PYRIDOXINE HYDROCHLORIDE\RIBOFLAVIN 5^-PHOSPHATE SODIUM\THIAMINE HYDROCHLORIDE\VITAMIN B COMPLEX
  2. MAGNESIUM [Concomitant]
     Active Substance: MAGNESIUM
  3. TURMERIC [Concomitant]
     Active Substance: HERBALS\TURMERIC
  4. ANDROGEL HCG [Concomitant]
  5. SAM-E L-TYROSINE [Concomitant]
  6. REPATHA [Suspect]
     Active Substance: EVOLOCUMAB
     Indication: BLOOD CHOLESTEROL INCREASED
     Dosage: QUANTITY:2 INJECTION(S);OTHER FREQUENCY:TWO WEEKS APART;?
     Route: 058
     Dates: start: 20160202, end: 20160216
  7. TYLENOL WITH CODEINE [Concomitant]
     Active Substance: ACETAMINOPHEN\CODEINE PHOSPHATE
  8. MULTI VITAMIN [Concomitant]
     Active Substance: VITAMINS
  9. METHYLFOLATE [Concomitant]
     Active Substance: LEVOMEFOLATE CALCIUM
  10. FISH OIL [Concomitant]
     Active Substance: FISH OIL
  11. GLUTATHIONE [Concomitant]
     Active Substance: GLUTATHIONE
  12. VITAMIN D [Concomitant]
     Active Substance: CHOLECALCIFEROL

REACTIONS (7)
  - Polyneuropathy [None]
  - Myelitis transverse [None]
  - Cognitive disorder [None]
  - Bedridden [None]
  - Fatigue [None]
  - Muscle spasms [None]
  - Memory impairment [None]

NARRATIVE: CASE EVENT DATE: 20160202
